FAERS Safety Report 5934268-7 (Version None)
Quarter: 2008Q4

REPORT INFORMATION
  Report Type: 
  Country: None (occurrence: None)
  Receive Date: 20081029
  Receipt Date: 20081020
  Transmission Date: 20090506
  Serious: Yes (Death)
  Sender: FDA-Public Use
  Company Number: US-BAXTER-2008BH011289

PATIENT
  Age: 72 Year
  Sex: Male
  Weight: 80 kg

DRUGS (4)
  1. MORPHINE SULFATE INJ [Suspect]
     Indication: ANALGESIA
     Route: 030
     Dates: start: 20081010, end: 20081010
  2. CANGRELOR [Suspect]
     Indication: PERCUTANEOUS CORONARY INTERVENTION
     Route: 042
     Dates: start: 20081010, end: 20081010
  3. CLOPIDOGREL [Suspect]
     Indication: PERCUTANEOUS CORONARY INTERVENTION
     Route: 048
     Dates: start: 20081010, end: 20081010
  4. CLOPIDOGREL [Suspect]
     Route: 048
     Dates: start: 20081010, end: 20081010

REACTIONS (1)
  - CARDIAC FAILURE ACUTE [None]
